FAERS Safety Report 4798879-7 (Version None)
Quarter: 2005Q4

REPORT INFORMATION
  Report Type: 
  Country: None (occurrence: None)
  Receive Date: 20051014
  Receipt Date: 20050914
  Transmission Date: 20060501
  Serious: Yes (Other)
  Sender: FDA-Public Use
  Company Number: DE-GLAXOSMITHKLINE-D0047494A

PATIENT
  Age: 66 Year
  Sex: Male
  Weight: 64 kg

DRUGS (7)
  1. AVODART [Suspect]
     Indication: BENIGN PROSTATIC HYPERPLASIA
     Dosage: .5MG UNKNOWN
     Route: 048
     Dates: start: 20050102
  2. LANTUS [Concomitant]
     Dosage: 10IU PER DAY
     Route: 065
  3. INSULIN [Concomitant]
     Dosage: 8IU THREE TIMES PER DAY
     Route: 065
  4. CONCOR [Concomitant]
     Dosage: 2.5MG PER DAY
     Route: 065
  5. LORZAAR [Concomitant]
     Dosage: .5TAB PER DAY
     Route: 065
  6. NEURIUM [Concomitant]
     Dosage: 600MG PER DAY
     Route: 065
  7. ASS RATIOPHARM [Concomitant]
     Dosage: 100MG TWICE PER DAY
     Route: 048

REACTIONS (1)
  - MITRAL VALVE INCOMPETENCE [None]
